FAERS Safety Report 14377556 (Version 1)
Quarter: 2018Q1

REPORT INFORMATION
  Report Type: Spontaneous
  Country: US (occurrence: US)
  Receive Date: 20180111
  Receipt Date: 20180111
  Transmission Date: 20180509
  Serious: Yes (Life-Threatening, Hospitalization, Other)
  Sender: FDA-Public Use
  Company Number: US-MYLANLABS-2018M1001278

PATIENT
  Age: 66 Year
  Sex: Female

DRUGS (1)
  1. ISOSULFAN BLUE INJECTION [Suspect]
     Active Substance: ISOSULFAN BLUE
     Indication: LYMPHATIC DISORDER
     Dosage: 10 MG, UNK
     Route: 058
     Dates: start: 20171214, end: 20171214

REACTIONS (3)
  - Arteriospasm coronary [Recovered/Resolved]
  - Resuscitation [Recovered/Resolved]
  - Hypotension [Recovered/Resolved]

NARRATIVE: CASE EVENT DATE: 20171214
